FAERS Safety Report 5857933-9 (Version None)
Quarter: 2008Q3

REPORT INFORMATION
  Report Type: 
  Country: None (occurrence: None)
  Receive Date: 20080826
  Receipt Date: 20080821
  Transmission Date: 20090109
  Serious: Yes (Death, Life-Threatening, Hospitalization)
  Sender: FDA-Public Use
  Company Number: GB-TEVA-172347ISR

PATIENT
  Sex: Female
  Weight: 57 kg

DRUGS (1)
  1. TRIMETHOPRIM [Suspect]
     Indication: URINARY TRACT INFECTION
     Route: 048
     Dates: start: 20080215, end: 20080220

REACTIONS (7)
  - AGRANULOCYTOSIS [None]
  - BLISTER [None]
  - DRUG INTOLERANCE [None]
  - INTESTINAL ULCER [None]
  - MALAISE [None]
  - MOUTH ULCERATION [None]
  - OROPHARYNGEAL BLISTERING [None]
